FAERS Safety Report 14281977 (Version 6)
Quarter: 2018Q2

REPORT INFORMATION
  Report Type: Spontaneous
  Country: DE (occurrence: DE)
  Receive Date: 20171213
  Receipt Date: 20180411
  Transmission Date: 20180711
  Serious: Yes (Hospitalization)
  Sender: FDA-Public Use
  Company Number: DE-PFIZER INC-2017525816

PATIENT
  Age: 35 Year
  Sex: Female
  Weight: 82 kg

DRUGS (5)
  1. RISPERDAL [Interacting]
     Active Substance: RISPERIDONE
     Indication: DEPRESSION
     Dosage: 2 MG, 1X/DAY
     Route: 048
     Dates: start: 20150906, end: 20170104
  2. CHLORPROTHIXENE [Concomitant]
     Active Substance: CHLORPROTHIXENE
     Dosage: 100 MG, 1X/DAY
     Route: 048
     Dates: start: 2014
  3. RISPERDAL [Interacting]
     Active Substance: RISPERIDONE
     Indication: BIPOLAR DISORDER
  4. SERTRALINE HCL [Suspect]
     Active Substance: SERTRALINE HYDROCHLORIDE
     Indication: BIPOLAR DISORDER
     Dosage: 100 MG, DAILY
     Route: 048
     Dates: start: 20150920, end: 20170115
  5. SERTRALINE HCL [Interacting]
     Active Substance: SERTRALINE HYDROCHLORIDE
     Indication: DEPRESSION

REACTIONS (6)
  - Depression [Not Recovered/Not Resolved]
  - Weight increased [Recovering/Resolving]
  - Drug ineffective for unapproved indication [Unknown]
  - Hunger [Recovered/Resolved]
  - Disease recurrence [Not Recovered/Not Resolved]
  - Drug interaction [Recovering/Resolving]

NARRATIVE: CASE EVENT DATE: 201509
